FAERS Safety Report 7784368-4 (Version None)
Quarter: 2011Q3

REPORT INFORMATION
  Report Type: 
  Country: None (occurrence: None)
  Receive Date: 20110928
  Receipt Date: 20110922
  Transmission Date: 20111222
  Serious: Yes (Hospitalization, Other)
  Sender: FDA-Public Use
  Company Number: PHHO2011KR10740

PATIENT
  Sex: Female
  Weight: 62.2 kg

DRUGS (4)
  1. AFINITOR [Suspect]
     Dosage: NO TREATMENT RECEIVED
     Dates: start: 20110623
  2. AFINITOR [Suspect]
     Indication: T-CELL LYMPHOMA
     Dosage: 5 MG, DAILY
     Route: 048
     Dates: start: 20110502, end: 20110622
  3. AFINITOR [Suspect]
     Dosage: 2.5 MG, DAILY
     Dates: start: 20110701
  4. CHOP [Concomitant]
     Indication: T-CELL LYMPHOMA
     Dosage: UNK
     Dates: start: 20110610

REACTIONS (2)
  - FEBRILE NEUTROPENIA [None]
  - THROMBOCYTOPENIA [None]
